FAERS Safety Report 7354429-2 (Version None)
Quarter: 2011Q1

REPORT INFORMATION
  Report Type: 
  Country: None (occurrence: None)
  Receive Date: 20110316
  Receipt Date: 20110303
  Transmission Date: 20110831
  Serious: Yes (Other)
  Sender: FDA-Public Use
  Company Number: US-CELGENEUS-163-20785-11031028

PATIENT
  Age: 10 Year
  Sex: Female

DRUGS (14)
  1. KINERET [Suspect]
     Indication: JUVENILE ARTHRITIS
     Route: 065
  2. ADALIMUMAB [Suspect]
     Dosage: 1 MILLIGRAM/KILOGRAM
     Route: 065
  3. CYCLOPHOSPHAMIDE [Suspect]
     Route: 051
  4. PREDNISONE [Suspect]
     Route: 065
  5. INFLIXIMAB [Suspect]
     Dosage: 3 MILLIGRAM/KILOGRAM
     Route: 065
  6. LEFLUNOMIDE [Suspect]
     Route: 065
  7. METHADONE [Concomitant]
     Route: 065
  8. RITUXIMAB [Suspect]
     Route: 065
  9. IBUPROFEN [Concomitant]
     Route: 065
  10. NAPROXEN [Concomitant]
     Route: 065
  11. THALOMID [Suspect]
     Indication: JUVENILE ARTHRITIS
     Route: 048
  12. ENBREL [Suspect]
     Route: 065
  13. METHOTREXATE [Suspect]
     Dosage: .8 MILLIGRAM/KILOGRAM
     Route: 065
  14. CORTICOSTEROIDS [Concomitant]

REACTIONS (3)
  - HODGKIN'S DISEASE [None]
  - ANAPHYLACTIC REACTION [None]
  - NO THERAPEUTIC RESPONSE [None]
